FAERS Safety Report 22222799 (Version 2)
Quarter: 2023Q2

REPORT INFORMATION
  Report Type: Spontaneous
  Country: US (occurrence: US)
  Receive Date: 20230418
  Receipt Date: 20230523
  Transmission Date: 20230721
  Serious: Yes (Hospitalization)
  Sender: FDA-Public Use
  Company Number: US-SA-SAC20230417000880

PATIENT
  Sex: Male
  Weight: 192.74 kg

DRUGS (3)
  1. DUPIXENT [Suspect]
     Active Substance: DUPILUMAB
     Indication: Asthma
     Dosage: 300 MG, QOW
     Route: 058
  2. TOBRAMYCIN [Suspect]
     Active Substance: TOBRAMYCIN
     Dosage: UNK
  3. ALLEGRA D 12HR [Concomitant]
     Dosage: UNK

REACTIONS (2)
  - Infection [Unknown]
  - Haemoptysis [Not Recovered/Not Resolved]
